FAERS Safety Report 9403531 (Version 1)
Quarter: 2013Q3

REPORT INFORMATION
  Report Type: Spontaneous
  Country: CO (occurrence: CO)
  Receive Date: 20130716
  Receipt Date: 20130716
  Transmission Date: 20140515
  Serious: Yes (Hospitalization)
  Sender: FDA-Public Use
  Company Number: CO-PFIZER INC-2013207461

PATIENT
  Sex: Male

DRUGS (6)
  1. SUTENT [Suspect]
     Dosage: 50 MG, 1X/DAY
     Route: 048
     Dates: start: 2012, end: 2012
  2. SUTENT [Suspect]
     Dosage: 25 MG, 1X/DAY
     Route: 048
     Dates: start: 2012, end: 2013
  3. METOPROLOL [Concomitant]
     Indication: HYPERTENSION
     Dosage: 100 MG, 2X/DAY
     Route: 048
     Dates: start: 2003
  4. PRAZOSIN [Concomitant]
     Indication: HYPOTONIA
     Dosage: UNK
     Route: 048
     Dates: start: 2003
  5. TIMOLOL [Concomitant]
     Indication: GLAUCOMA
     Dosage: UNK
     Route: 047
  6. INSULIN [Concomitant]
     Indication: DIABETES MELLITUS
     Dosage: UNK
     Dates: start: 2005

REACTIONS (1)
  - Laceration [Recovered/Resolved]
